FAERS Safety Report 10036378 (Version 1)
Quarter: 2014Q1

REPORT INFORMATION
  Report Type: Spontaneous
  Country: SE (occurrence: SE)
  Receive Date: 20140325
  Receipt Date: 20140325
  Transmission Date: 20141002
  Serious: Yes (Death, Other)
  Sender: FDA-Public Use
  Company Number: PHHY2014SE032039

PATIENT
  Age: 16 Year
  Sex: Female

DRUGS (2)
  1. CARBOPLATIN [Suspect]
     Indication: RHABDOMYOSARCOMA
     Dosage: 2.4 G/M2
  2. IFOSFAMIDE [Suspect]
     Indication: RHABDOMYOSARCOMA
     Dosage: 36 G/M2

REACTIONS (2)
  - Rhabdomyosarcoma [Fatal]
  - Ovarian disorder [Unknown]
